FAERS Safety Report 7377710-X (Version None)
Quarter: 2011Q1

REPORT INFORMATION
  Report Type: 
  Country: None (occurrence: None)
  Receive Date: 20110328
  Receipt Date: 20110318
  Transmission Date: 20110831
  Serious: Yes (Hospitalization)
  Sender: FDA-Public Use
  Company Number: US-GENZYME-CERZ-1001641

PATIENT
  Sex: Male

DRUGS (23)
  1. SENNA [Concomitant]
     Indication: CONSTIPATION
     Dosage: 8.6 MG, QD
     Route: 048
  2. DIAZEPAM [Concomitant]
     Dosage: 7 MG, QD
     Route: 048
  3. SENNA LAX [Concomitant]
     Indication: PRODUCT USED FOR UNKNOWN INDICATION
     Dosage: UNK
     Route: 048
  4. SEROQUEL [Concomitant]
     Indication: PRODUCT USED FOR UNKNOWN INDICATION
     Dosage: 2000 MG, QD
     Route: 048
  5. COMTAN [Concomitant]
     Indication: PRODUCT USED FOR UNKNOWN INDICATION
     Route: 048
  6. ASPIRIN [Concomitant]
     Indication: PAIN
     Dosage: 81 MG, QD
     Route: 048
  7. ASPIRIN [Concomitant]
     Indication: PYREXIA
  8. OXYCODONE [Concomitant]
     Indication: PAIN
     Dosage: 15 MG, PRN
     Route: 048
  9. ROPINIROLE HYDROCHLORIDE [Concomitant]
     Indication: PRODUCT USED FOR UNKNOWN INDICATION
     Dosage: 5 MG, QD
     Route: 048
  10. LEXAPRO [Concomitant]
     Indication: DEPRESSION
     Dosage: 20 MG, QD
     Route: 048
  11. PRILOSEC [Concomitant]
     Indication: GASTROOESOPHAGEAL REFLUX DISEASE
     Dosage: 20 MG, QD
     Route: 048
  12. MILK OF MAGNESIA TAB [Concomitant]
     Indication: CONSTIPATION
     Dosage: 30 ML, PRN
     Route: 048
  13. REQUIP [Concomitant]
     Indication: PARKINSON'S DISEASE
     Dosage: 2 MG, QID
     Route: 048
  14. CELEBREX [Concomitant]
     Indication: PRODUCT USED FOR UNKNOWN INDICATION
     Route: 048
  15. CEREZYME [Suspect]
     Indication: GAUCHER'S DISEASE
     Dosage: 60 U/KG, Q2W
     Route: 042
     Dates: start: 19950101, end: 20100101
  16. CARBIDOPA [Concomitant]
     Indication: PARKINSON'S DISEASE
     Dosage: UNK MG, QID
     Route: 048
  17. LORAZEPAM [Concomitant]
     Indication: ANXIETY
     Dosage: 1 MG, PRN
     Route: 048
  18. RESTORIL [Concomitant]
     Indication: INSOMNIA
     Dosage: 15 MG, UNK
  19. PANTOPRAZOLE SODIUM [Concomitant]
     Indication: PRODUCT USED FOR UNKNOWN INDICATION
     Dosage: 1 UNK, UNK
     Route: 048
  20. CLONAZEPAM [Concomitant]
     Indication: PRODUCT USED FOR UNKNOWN INDICATION
     Dosage: 0.5 MG, BID
     Route: 048
  21. HYDROMORPHONE HCL [Concomitant]
     Indication: PAIN
     Dosage: 2 MG, PRN
     Route: 048
  22. DIAZEPAM [Concomitant]
     Indication: MUSCULOSKELETAL STIFFNESS
     Dosage: 2 MG, UNK
     Route: 048
  23. COLACE [Concomitant]
     Indication: CONSTIPATION
     Dosage: 100 MG, BID
     Route: 048

REACTIONS (1)
  - ABNORMAL BEHAVIOUR [None]
